FAERS Safety Report 8805897 (Version 2)
Quarter: 2014Q2

REPORT INFORMATION
  Report Type: Spontaneous
  Country: US (occurrence: None)
  Receive Date: 20120918
  Receipt Date: 20140611
  Transmission Date: 20141212
  Serious: Yes (Other)
  Sender: FDA-Public Use
  Company Number: ADR-2012-01707

PATIENT
  Sex: Female

DRUGS (2)
  1. BACLOFEN INTRATHECAL (BACLOFEN INJECTION) [Suspect]
     Indication: PAIN
  2. FENTANYL INTRATHECAL [Concomitant]

REACTIONS (16)
  - No therapeutic response [None]
  - Sciatica [None]
  - Ear pain [None]
  - Neck pain [None]
  - Musculoskeletal pain [None]
  - Gait disturbance [None]
  - Crying [None]
  - Complex regional pain syndrome [None]
  - Skin discolouration [None]
  - Back pain [None]
  - Eye pain [None]
  - Musculoskeletal pain [None]
  - Feeling abnormal [None]
  - Drug withdrawal syndrome [None]
  - Tremor [None]
  - Muscle tightness [None]
